FAERS Safety Report 15869639 (Version 1)
Quarter: 2019Q1

REPORT INFORMATION
  Report Type: Spontaneous
  Country: US (occurrence: US)
  Receive Date: 20190125
  Receipt Date: 20190125
  Transmission Date: 20190417
  Serious: Yes (Other)
  Sender: FDA-Public Use
  Company Number: US-ADAPT PHARMA-2019ADP00003

PATIENT
  Sex: Female

DRUGS (2)
  1. UNSPECIFIED OPIOIDS (UNSPECIFIED) UNKNOWN [Suspect]
     Active Substance: UNSPECIFIED INGREDIENT
     Dosage: UNK, UNK
     Route: 065
  2. NARCAN [Suspect]
     Active Substance: NALOXONE HYDROCHLORIDE
     Indication: OVERDOSE
     Dosage: 4 MG, SIX TIMES
     Route: 045
     Dates: start: 201901, end: 201901

REACTIONS (1)
  - Seizure [Unknown]

NARRATIVE: CASE EVENT DATE: 201901
